FAERS Safety Report 8439342 (Version 2)
Quarter: 2013Q2

REPORT INFORMATION
  Report Type: Spontaneous
  Country: US (occurrence: None)
  Receive Date: 20120104
  Receipt Date: 20120709
  Transmission Date: 20140414
  Serious: Yes (Other)
  Sender: FDA-Public Use
  Company Number: 2011HGS-002865

PATIENT
  Age: 58 Year
  Sex: Female
  Weight: 52.62 kg

DRUGS (14)
  1. BENLYSTA [Suspect]
     Indication: SYSTEMIC LUPUS ERYTHEMATOSUS
     Dosage: 1 IN 28 D, INTRAVENOUS DRIP
     Route: 041
     Dates: start: 20110626
  2. AMLORIDE (AMILORIDE) [Concomitant]
  3. CALCITRIOL [Concomitant]
  4. HYDROCHLORATHIAZIDE (HYDROCHLOROTHIAZIDE) (HYDROCHLOROTHIAZIDE) [Concomitant]
  5. POTASSIUM CHLORIDE [Concomitant]
  6. PRILOSEC [Concomitant]
  7. EVISTA [Concomitant]
  8. LEVOTHYROXIN (LEVOTHYROXINE) (LEVOTHYROXINE) [Concomitant]
  9. SIMVASTATIN [Concomitant]
  10. FOLIC ACID [Concomitant]
  11. PLAQUENIL [Concomitant]
  12. METHOTREXATE [Concomitant]
  13. TRAMADOL HYDROCHLORIDE [Concomitant]
  14. POTASSIUM CITRATE [Concomitant]

REACTIONS (2)
  - ALOPECIA [None]
  - Trichorrhexis [None]
